FAERS Safety Report 9346770 (Version 1)
Quarter: 2013Q2

REPORT INFORMATION
  Report Type: Spontaneous
  Country: US (occurrence: US)
  Receive Date: 20130613
  Receipt Date: 20130613
  Transmission Date: 20140414
  Serious: No
  Sender: FDA-Public Use
  Company Number: US-MYLANLABS-2013S1008618

PATIENT
  Age: 85 Year
  Sex: Female

DRUGS (5)
  1. CLOPIDOGREL TABLETS USP [Suspect]
     Route: 048
     Dates: start: 201301
  2. MELOXICAM [Concomitant]
  3. METHADONE [Concomitant]
  4. SERTRALINE [Concomitant]
  5. SIMVASTATIN [Concomitant]

REACTIONS (2)
  - Dizziness [Not Recovered/Not Resolved]
  - Nausea [Not Recovered/Not Resolved]
